FAERS Safety Report 6926155-2 (Version None)
Quarter: 2010Q3

REPORT INFORMATION
  Report Type: 
  Country: None (occurrence: None)
  Receive Date: 20100816
  Receipt Date: 20100813
  Transmission Date: 20110219
  Serious: Yes (Hospitalization)
  Sender: FDA-Public Use
  Company Number: CA-WYE-G06496710

PATIENT
  Age: 12 Year
  Sex: Male

DRUGS (2)
  1. EFFEXOR XR [Suspect]
     Route: 048
     Dates: start: 20100622
  2. EPIPEN [Concomitant]
     Indication: FOOD ALLERGY
     Dosage: 1 DOSE PRN

REACTIONS (3)
  - CONVULSION [None]
  - LOSS OF CONSCIOUSNESS [None]
  - PARALYSIS [None]
